FAERS Safety Report 16966605 (Version 1)
Quarter: 2019Q4

REPORT INFORMATION
  Report Type: Spontaneous
  Country: IT (occurrence: IT)
  Receive Date: 20191028
  Receipt Date: 20191028
  Transmission Date: 20200122
  Serious: Yes (Other)
  Sender: FDA-Public Use
  Company Number: IT-MYLANLABS-2019M1101087

PATIENT
  Sex: Female

DRUGS (5)
  1. RITONAVIR. [Interacting]
     Active Substance: RITONAVIR
     Indication: HIV INFECTION
     Dosage: 100 MILLIGRAM
     Route: 065
  2. TENOFOVIR [Interacting]
     Active Substance: TENOFOVIR
     Indication: HIV INFECTION
     Dosage: 245 MILLIGRAM
     Route: 065
  3. ATAZANAVIR SULFATE. [Suspect]
     Active Substance: ATAZANAVIR SULFATE
     Indication: HIV INFECTION
     Dosage: (50NG/ML (FIRST TROUGH CONCENTRATION))
     Route: 065
  4. ORLISTAT. [Interacting]
     Active Substance: ORLISTAT
     Indication: HIV INFECTION
     Dosage: 180 MILLIGRAM, QD (60 MILLIGRAM, TID)
     Route: 065
  5. EMTRICITABINE [Interacting]
     Active Substance: EMTRICITABINE
     Indication: HIV INFECTION
     Dosage: 200 MILLIGRAM
     Route: 065

REACTIONS (2)
  - Virologic failure [Unknown]
  - Drug interaction [Unknown]
